FAERS Safety Report 9965532 (Version 1)
Quarter: 2014Q1

REPORT INFORMATION
  Report Type: Report from Study
  Country: US (occurrence: US)
  Receive Date: 20140305
  Receipt Date: 20140305
  Transmission Date: 20141002
  Serious: No
  Sender: FDA-Public Use
  Company Number: US-ABBVIE-13P-163-1126580-00

PATIENT
  Age: 52 Year
  Sex: Female

DRUGS (4)
  1. HUMIRA [Suspect]
     Indication: PSORIATIC ARTHROPATHY
     Dates: start: 20130626
  2. ZOLOFT [Concomitant]
     Indication: ANXIETY
     Dosage: 50 MG DAILY
  3. ATENOLOL [Concomitant]
     Indication: TACHYCARDIA
     Dosage: 12.5 DAILY
  4. UNKNOWN NASAL SPRAY [Concomitant]
     Indication: SEASONAL ALLERGY
     Dosage: USES SOMETIMES
     Route: 045

REACTIONS (1)
  - Infection [Recovered/Resolved]
